FAERS Safety Report 9112420 (Version 1)
Quarter: 2013Q1

REPORT INFORMATION
  Report Type: Spontaneous
  Country: US (occurrence: US)
  Receive Date: 20130219
  Receipt Date: 20130219
  Transmission Date: 20140127
  Serious: Yes (Other)
  Sender: FDA-Public Use
  Company Number: US-BRISTOL-MYERS SQUIBB COMPANY-16416208

PATIENT
  Age: 54 Year
  Sex: Female
  Weight: 102.94 kg

DRUGS (1)
  1. ORENCIA [Suspect]
     Dosage: RESTAT ON 16FEB2012
     Dates: end: 201202

REACTIONS (2)
  - Pharyngeal oedema [Unknown]
  - Drug ineffective [Unknown]
